FAERS Safety Report 22767462 (Version 8)
Quarter: 2024Q3

REPORT INFORMATION
  Report Type: Report from Study
  Country: GR (occurrence: GR)
  Receive Date: 20230731
  Receipt Date: 20240828
  Transmission Date: 20241016
  Serious: Yes (Hospitalization)
  Sender: ABBVIE
  Company Number: GR-ABBVIE-5346352

PATIENT
  Age: 77 Year
  Sex: Female

DRUGS (5)
  1. CARBIDOPA\LEVODOPA [Suspect]
     Active Substance: CARBIDOPA\LEVODOPA
     Indication: Parkinson^s disease
     Dosage: MORNING DOSE: 10.0ML; CONTINUOUS RATE: 4.5ML/H; EXTRA DOSE: 1.5ML
     Route: 050
     Dates: start: 20150529
  2. CARBIDOPA\LEVODOPA [Suspect]
     Active Substance: CARBIDOPA\LEVODOPA
     Dosage: MORNING DOSE: 11.0ML; CONTINUOUS RATE: 4.5ML/H; EXTRA DOSE: 1.5ML
     Route: 050
  3. CARBIDOPA\LEVODOPA [Suspect]
     Active Substance: CARBIDOPA\LEVODOPA
     Dosage: MORNING DOSE: 11.0ML; CONTINUOUS RATE: 4.1ML/H; EXTRA DOSE: 1.5ML
     Route: 050
  4. CARBIDOPA\LEVODOPA [Suspect]
     Active Substance: CARBIDOPA\LEVODOPA
     Dosage: MORNING DOSE: 11.0ML; CONTINUOUS RATE: 4.1ML/H; EXTRA DOSE: 1.5ML
     Route: 050
  5. CARBIDOPA\LEVODOPA [Suspect]
     Active Substance: CARBIDOPA\LEVODOPA
     Dosage: MORNING DOSE: 11.0ML; CONTINUOUS RATE: 3.0ML/H; EXTRA DOSE: 1.5ML
     Route: 050

REACTIONS (15)
  - Hypophagia [Not Recovered/Not Resolved]
  - Urinary tract infection [Recovered/Resolved]
  - Febrile convulsion [Recovered/Resolved]
  - Drowning [Not Recovered/Not Resolved]
  - Pneumonia aspiration [Recovered/Resolved]
  - Pyrexia [Recovered/Resolved]
  - Choking [Unknown]
  - Pyrexia [Recovered/Resolved]
  - Lethargy [Recovered/Resolved]
  - Blood glucose decreased [Recovered/Resolved]
  - Catheter removal [Recovered/Resolved]
  - Bedridden [Not Recovered/Not Resolved]
  - Catheter removal [Recovered/Resolved]
  - Speech disorder [Not Recovered/Not Resolved]
  - Gastrostomy [Recovered/Resolved]

NARRATIVE: CASE EVENT DATE: 20230726
